FAERS Safety Report 8389030-5 (Version None)
Quarter: 2012Q2

REPORT INFORMATION
  Report Type: 
  Country: None (occurrence: None)
  Receive Date: 20120528
  Receipt Date: 20120521
  Transmission Date: 20120825
  Serious: No
  Sender: FDA-Public Use
  Company Number: US-PFIZER INC-2012115806

PATIENT
  Sex: Female
  Weight: 75 kg

DRUGS (8)
  1. METOPROLOL [Concomitant]
     Indication: CARDIAC DISORDER
  2. VITAMIN D [Concomitant]
     Indication: VITAMIN SUPPLEMENTATION
     Dosage: UNK, DAILY
  3. AMLODIPINE [Concomitant]
     Indication: CARDIAC DISORDER
  4. AMLODIPINE [Concomitant]
     Indication: HYPERTENSION
     Dosage: HALF 5 MG TABLET, DAILY
  5. ARTHROTEC [Concomitant]
     Indication: ARTHRITIS
     Dosage: 75/200 MG/MCG, DAILY
  6. LIPITOR [Suspect]
     Indication: BLOOD CHOLESTEROL INCREASED
     Dosage: 20 MG, DAILY
     Route: 048
     Dates: start: 20111201
  7. METOPROLOL [Concomitant]
     Indication: HYPERTENSION
     Dosage: HALF 25 MG TABLET, DAILY
  8. AGGRENOX [Concomitant]
     Indication: ANTICOAGULANT THERAPY
     Dosage: 25/200 MG/MG, TWICE A DAY

REACTIONS (2)
  - ARTHRALGIA [None]
  - MYALGIA [None]
